FAERS Safety Report 7274102-9 (Version None)
Quarter: 2011Q1

REPORT INFORMATION
  Report Type: 
  Country: None (occurrence: None)
  Receive Date: 20110204
  Receipt Date: 20110128
  Transmission Date: 20110831
  Serious: Yes (Hospitalization)
  Sender: FDA-Public Use
  Company Number: 198327

PATIENT
  Sex: Male

DRUGS (2)
  1. AVONEX [Suspect]
     Indication: MULTIPLE SCLEROSIS
     Route: 030
     Dates: start: 19990101
  2. CYTOXAN [Concomitant]

REACTIONS (5)
  - MEMORY IMPAIRMENT [None]
  - GAIT DISTURBANCE [None]
  - CHEMOTHERAPY [None]
  - ABASIA [None]
  - ALOPECIA [None]
